FAERS Safety Report 5957026-6 (Version None)
Quarter: 2008Q4

REPORT INFORMATION
  Report Type: 
  Country: None (occurrence: None)
  Receive Date: 20081118
  Receipt Date: 20080918
  Transmission Date: 20090506
  Serious: No
  Sender: FDA-Public Use
  Company Number: A0748156A

PATIENT
  Age: 69 Year
  Sex: Female

DRUGS (7)
  1. COREG CR [Suspect]
     Dosage: 20MG PER DAY
     Route: 048
     Dates: start: 20070416
  2. ALTACE [Concomitant]
  3. COUMADIN [Concomitant]
  4. DARVOCET [Concomitant]
  5. DIGOXIN [Concomitant]
  6. PROPRANOLOL [Concomitant]
  7. FUROSEMIDE [Concomitant]

REACTIONS (1)
  - DRUG INEFFECTIVE [None]
